FAERS Safety Report 18617200 (Version 1)
Quarter: 2020Q4

REPORT INFORMATION
  Report Type: Spontaneous
  Country: SI (occurrence: SI)
  Receive Date: 20201215
  Receipt Date: 20201215
  Transmission Date: 20210114
  Serious: Yes (Life-Threatening, Hospitalization, Other)
  Sender: FDA-Public Use
  Company Number: SI-TEVA-2020-SI-1857579

PATIENT
  Age: 54 Year
  Sex: Male

DRUGS (9)
  1. NOLPAZA 40 MG [Concomitant]
     Dosage: 40 MG
  2. LYRICA [Concomitant]
     Active Substance: PREGABALIN
     Dosage: 75 MG
  3. DEXAMETHASONE. [Concomitant]
     Active Substance: DEXAMETHASONE
     Dosage: ACCORDING TO THE SCHEME
  4. KYTRIL 2 MG [Concomitant]
     Dosage: 2 MG
  5. EPIRUBICINIJEV KLORID PCH 2 MG/ML RAZTOPINA ZA INJICIRANJE ALI INFUNDI [Suspect]
     Active Substance: EPIRUBICIN HYDROCHLORIDE
     Indication: SOFT TISSUE SARCOMA
     Dosage: 120 MG
     Route: 042
     Dates: start: 20200303, end: 20200609
  6. NEULASTA [Concomitant]
     Active Substance: PEGFILGRASTIM
     Dosage: PRE-FILLED SYRINGE
  7. VOXIN [Concomitant]
  8. NAKLOFEN DUO 75 MG [Concomitant]
     Dosage: 75 MG
  9. REGLAN [Concomitant]
     Active Substance: METOCLOPRAMIDE HYDROCHLORIDE

REACTIONS (1)
  - Administration site extravasation [Recovered/Resolved]

NARRATIVE: CASE EVENT DATE: 20200601
